FAERS Safety Report 18243803 (Version 1)
Quarter: 2020Q3

REPORT INFORMATION
  Report Type: Spontaneous
  Country: US (occurrence: US)
  Receive Date: 20200908
  Receipt Date: 20200908
  Transmission Date: 20201103
  Serious: Yes (Hospitalization)
  Sender: FDA-Public Use
  Company Number: US-SLATE RUN PHARMACEUTICALS-20US000269

PATIENT

DRUGS (3)
  1. VANCOMYCIN HYDROCHLORIDE USP [Suspect]
     Active Substance: VANCOMYCIN HYDROCHLORIDE
     Indication: STREPTOBACILLUS INFECTION
     Dosage: 1.5 GRAM, Q 12 HR
     Route: 065
  2. CEFTRIAXONE. [Concomitant]
     Active Substance: CEFTRIAXONE
     Indication: STREPTOBACILLUS INFECTION
     Dosage: 2 GRAM, Q 12 HR
     Route: 065
  3. CLINDAMYCIN. [Concomitant]
     Active Substance: CLINDAMYCIN
     Indication: STREPTOBACILLUS INFECTION
     Route: 065

REACTIONS (4)
  - Cardiac failure [Unknown]
  - Pyrexia [Unknown]
  - Arrhythmia [Unknown]
  - Maternal exposure during pregnancy [Unknown]
